FAERS Safety Report 4864338-6 (Version None)
Quarter: 2005Q4

REPORT INFORMATION
  Report Type: 
  Country: None (occurrence: None)
  Receive Date: 20051221
  Receipt Date: 20051221
  Transmission Date: 20060501
  Serious: Yes (Hospitalization, Other)
  Sender: FDA-Public Use
  Company Number: None

PATIENT
  Age: 27 Day
  Sex: Male
  Weight: 3.7649 kg

DRUGS (2)
  1. ILOSONE [Suspect]
     Indication: CONJUNCTIVITIS
     Dosage: 1/2 TSP TID PO
     Route: 048
     Dates: start: 20051128, end: 20051204
  2. ILOSONE [Suspect]
     Indication: COUGH
     Dosage: 1/2 TSP TID PO
     Route: 048
     Dates: start: 20051128, end: 20051204

REACTIONS (1)
  - PYLORIC STENOSIS [None]
